FAERS Safety Report 12675692 (Version 1)
Quarter: 2016Q3

REPORT INFORMATION
  Report Type: Spontaneous
  Country: US (occurrence: US)
  Receive Date: 20160823
  Receipt Date: 20160823
  Transmission Date: 20161109
  Serious: No
  Sender: FDA-Public Use
  Company Number: US-JAZZ-2016-US-006565

PATIENT
  Sex: Female

DRUGS (13)
  1. XYREM [Suspect]
     Active Substance: SODIUM OXYBATE
     Dosage: 4.5 G, BID
     Route: 048
     Dates: start: 201409
  2. DOXYCYCLINE. [Concomitant]
     Active Substance: DOXYCYCLINE
  3. VITAMIN E [Concomitant]
     Active Substance: .ALPHA.-TOCOPHEROL
  4. XYREM [Suspect]
     Active Substance: SODIUM OXYBATE
     Indication: NARCOLEPSY
     Dosage: 2.25 G, BID
     Route: 048
     Dates: start: 200712, end: 200802
  5. NASONEX [Concomitant]
     Active Substance: MOMETASONE FUROATE
  6. XALATAN [Concomitant]
     Active Substance: LATANOPROST
  7. XYREM [Suspect]
     Active Substance: SODIUM OXYBATE
     Dosage: DOSE ADJUSTMENTS
     Route: 048
  8. IBUPROFEN. [Concomitant]
     Active Substance: IBUPROFEN
  9. TYLENOL [Concomitant]
     Active Substance: ACETAMINOPHEN
  10. ASPIRIN. [Concomitant]
     Active Substance: ASPIRIN
  11. NAPROXEN. [Concomitant]
     Active Substance: NAPROXEN
  12. HEMOGENIC [Concomitant]
  13. VITAMIN C [Concomitant]
     Active Substance: ASCORBIC ACID

REACTIONS (2)
  - Fatigue [Not Recovered/Not Resolved]
  - Somnolence [Unknown]
